FAERS Safety Report 14782001 (Version 2)
Quarter: 2018Q3

REPORT INFORMATION
  Report Type: Spontaneous
  Country: DE (occurrence: DE)
  Receive Date: 20180420
  Receipt Date: 20180824
  Transmission Date: 20181010
  Serious: Yes (Life-Threatening, Hospitalization, Other)
  Sender: FDA-Public Use
  Company Number: DE-AMGEN-DEUSP2018050988

PATIENT
  Age: 77 Year
  Sex: Female
  Weight: 93 kg

DRUGS (3)
  1. PROLIA [Suspect]
     Active Substance: DENOSUMAB
     Indication: OSTEOPOROSIS POSTMENOPAUSAL
     Dosage: 60 MG, Q6MO
     Route: 058
  2. FALITHROM [Concomitant]
     Active Substance: PHENPROCOUMON
     Indication: AORTIC VALVE REPLACEMENT
     Dosage: 3 MG, UNK
  3. ASPIRIN. [Concomitant]
     Active Substance: ASPIRIN
     Dosage: 100 MG, QD

REACTIONS (3)
  - Aortic valve stenosis [Recovered/Resolved]
  - Mitral valve stenosis [Recovered/Resolved]
  - Postoperative abscess [Recovered/Resolved]

NARRATIVE: CASE EVENT DATE: 20180301
